FAERS Safety Report 17133040 (Version 2)
Quarter: 2020Q1

REPORT INFORMATION
  Report Type: Report from Study
  Country: None (occurrence: US)
  Receive Date: 20191210
  Receipt Date: 20200304
  Transmission Date: 20200409
  Serious: Yes (Hospitalization)
  Sender: FDA-Public Use
  Company Number: US-ABBVIE-19K-163-3186914-00

PATIENT
  Sex: Female

DRUGS (1)
  1. HUMIRA [Suspect]
     Active Substance: ADALIMUMAB
     Indication: RHEUMATOID ARTHRITIS
     Dosage: CITRATE FREE
     Route: 058

REACTIONS (7)
  - Stomach mass [Unknown]
  - Depression [Recovered/Resolved]
  - Diverticulitis [Unknown]
  - Hypertension [Recovered/Resolved]
  - Rectal haemorrhage [Recovering/Resolving]
  - Abdominal pain upper [Unknown]
  - Proctalgia [Recovered/Resolved]

NARRATIVE: CASE EVENT DATE: 2019
